FAERS Safety Report 18193115 (Version 1)
Quarter: 2020Q3

REPORT INFORMATION
  Report Type: Spontaneous
  Country: JP (occurrence: JP)
  Receive Date: 20200825
  Receipt Date: 20200825
  Transmission Date: 20201103
  Serious: Yes (Hospitalization, Other)
  Sender: FDA-Public Use
  Company Number: JP-BAYER-2020-173760

PATIENT
  Age: 76 Year
  Sex: Male
  Weight: 50 kg

DRUGS (15)
  1. STIVARGA [Suspect]
     Active Substance: REGORAFENIB
     Indication: COLON CANCER
     Dosage: 80 MG, QD
     Route: 048
     Dates: start: 20200318
  2. FUROSEMIDE. [Concomitant]
     Active Substance: FUROSEMIDE
  3. TELMISARTAN. [Concomitant]
     Active Substance: TELMISARTAN
  4. STIVARGA [Suspect]
     Active Substance: REGORAFENIB
     Indication: COLON CANCER
     Dosage: 80 MG, QD
     Route: 048
     Dates: start: 20200617, end: 20200623
  5. ALLOPURINOL. [Suspect]
     Active Substance: ALLOPURINOL
     Dosage: UNK
     Dates: end: 20200715
  6. AMLODIPINE [Concomitant]
     Active Substance: AMLODIPINE BESYLATE
  7. STIVARGA [Suspect]
     Active Substance: REGORAFENIB
     Indication: COLON CANCER
     Dosage: 80 MG, QD
     Route: 048
     Dates: start: 20200513
  8. THYRADIN?S [Concomitant]
     Active Substance: LEVOTHYROXINE
  9. CARDENALIN [Concomitant]
     Active Substance: DOXAZOSIN MESYLATE
  10. MIYA?BM [Concomitant]
     Active Substance: CLOSTRIDIUM BUTYRICUM SPORES STRAIN M-55
  11. LEVOFLOXACIN HEMIHYDRATE [Concomitant]
     Active Substance: LEVOFLOXACIN
  12. IRON [Concomitant]
     Active Substance: IRON
  13. CETILO [Concomitant]
     Active Substance: SENNA LEAF
  14. TANATRIL [Concomitant]
     Active Substance: IMIDAPRIL
  15. ALFACALCIDOL [Concomitant]
     Active Substance: ALFACALCIDOL

REACTIONS (15)
  - Paraneoplastic rash [Recovering/Resolving]
  - Chills [Recovering/Resolving]
  - Rash [Recovering/Resolving]
  - Acute kidney injury [None]
  - Pyrexia [Recovering/Resolving]
  - Erythema [Recovering/Resolving]
  - Off label use [None]
  - Constipation [None]
  - Malaise [None]
  - Feeling hot [Recovering/Resolving]
  - Drug eruption [Recovering/Resolving]
  - Oedema peripheral [Recovering/Resolving]
  - Hyperkalaemia [None]
  - Abdominal distension [Recovering/Resolving]
  - Exfoliative rash [Recovering/Resolving]

NARRATIVE: CASE EVENT DATE: 20200318
